FAERS Safety Report 18489430 (Version 2)
Quarter: 2025Q2

REPORT INFORMATION
  Report Type: Spontaneous
  Country: FI (occurrence: FI)
  Receive Date: 20201111
  Receipt Date: 20250429
  Transmission Date: 20250717
  Serious: Yes (Other)
  Sender: ABBVIE
  Company Number: FI-TAKEDA-2020TEU010577

PATIENT
  Age: 51 Year
  Sex: Male

DRUGS (1)
  1. LEUPROLIDE ACETATE [Suspect]
     Active Substance: LEUPROLIDE ACETATE
     Indication: Prostate cancer
     Dosage: DUAL 30MG
     Route: 065
     Dates: start: 2018

REACTIONS (1)
  - Hypoacusis [Unknown]
